FAERS Safety Report 5004775-2 (Version None)
Quarter: 2006Q1

REPORT INFORMATION
  Report Type: 
  Country: None (occurrence: None)
  Receive Date: 20060321
  Receipt Date: 20060113
  Transmission Date: 20060701
  Serious: No
  Sender: FDA-Public Use
  Company Number: YPA20050635

PATIENT
  Age: 47 Year
  Sex: Female

DRUGS (1)
  1. VESICARE [Suspect]
     Indication: COLONOSCOPY
     Dosage: 280 MG, ORAL
     Route: 048
     Dates: start: 20051101, end: 20051101

REACTIONS (3)
  - DRUG DISPENSING ERROR [None]
  - MENTAL STATUS CHANGES [None]
  - OVERDOSE [None]
